FAERS Safety Report 8365554-1 (Version None)
Quarter: 2012Q2

REPORT INFORMATION
  Report Type: 
  Country: None (occurrence: None)
  Receive Date: 20120516
  Receipt Date: 20120511
  Transmission Date: 20120825
  Serious: Yes (Death)
  Sender: FDA-Public Use
  Company Number: JP-ABBOTT-12P-087-0914360-00

PATIENT
  Age: 82 Year
  Sex: Male
  Weight: 40 kg

DRUGS (9)
  1. RIFAMPICIN [Suspect]
     Indication: ATYPICAL MYCOBACTERIAL INFECTION
     Dates: start: 20090622, end: 20100316
  2. ETHAMBUTOL HYDROCHLORIDE [Concomitant]
     Indication: ATYPICAL MYCOBACTERIAL INFECTION
     Dates: start: 20090623
  3. ASTOMIN [Concomitant]
     Indication: ATYPICAL MYCOBACTERIAL INFECTION
     Route: 048
     Dates: start: 20090622, end: 20100727
  4. MUCODYNE [Concomitant]
     Indication: ATYPICAL MYCOBACTERIAL INFECTION
     Route: 048
     Dates: start: 20090702, end: 20100727
  5. MUCOSOLVAN [Concomitant]
     Indication: ATYPICAL MYCOBACTERIAL INFECTION
     Route: 048
     Dates: start: 20090702, end: 20100727
  6. RHYTHMY [Concomitant]
     Indication: PRODUCT USED FOR UNKNOWN INDICATION
     Route: 048
     Dates: end: 20100727
  7. RIFAMPICIN [Suspect]
     Dates: start: 20100317, end: 20100720
  8. OLOPATADINE HCL [Concomitant]
     Indication: PRODUCT USED FOR UNKNOWN INDICATION
     Route: 048
     Dates: end: 20100727
  9. CLARITHROMYCIN [Suspect]
     Indication: ATYPICAL MYCOBACTERIAL INFECTION
     Route: 048
     Dates: start: 20090601, end: 20100720

REACTIONS (3)
  - SUBARACHNOID HAEMORRHAGE [None]
  - HYPOAESTHESIA [None]
  - NEUROGENIC BLADDER [None]
